FAERS Safety Report 8135406-0 (Version None)
Quarter: 2012Q1

REPORT INFORMATION
  Report Type: 
  Country: None (occurrence: None)
  Receive Date: 20120214
  Receipt Date: 20120202
  Transmission Date: 20120608
  Serious: Yes (Other)
  Sender: FDA-Public Use
  Company Number: US-SANOFI-AVENTIS-2012SA007063

PATIENT
  Age: 51 Year
  Sex: Female

DRUGS (2)
  1. SOLOSTAR [Suspect]
     Indication: DIABETES MELLITUS
     Dates: start: 20080101
  2. LANTUS [Suspect]
     Indication: DIABETES MELLITUS
     Dosage: DOSE:80 UNIT(S)
     Route: 058
     Dates: start: 20080101

REACTIONS (2)
  - VISUAL ACUITY REDUCED [None]
  - GLAUCOMA [None]
